FAERS Safety Report 20647727 (Version 1)
Quarter: 2022Q1

REPORT INFORMATION
  Report Type: Spontaneous
  Country: US (occurrence: US)
  Receive Date: 20220329
  Receipt Date: 20220329
  Transmission Date: 20220423
  Serious: No
  Sender: FDA-Public Use
  Company Number: US-BRISTOL-MYERS SQUIBB COMPANY-2022-011850

PATIENT
  Age: 53 Year
  Sex: Female
  Weight: 95.98 kg

DRUGS (1)
  1. REVLIMID [Suspect]
     Active Substance: LENALIDOMIDE
     Indication: Plasma cell myeloma
     Dosage: CAPS-21/BTL
     Route: 048
     Dates: start: 20191119

REACTIONS (1)
  - Nausea [Unknown]
